FAERS Safety Report 23337545 (Version 3)
Quarter: 2024Q1

REPORT INFORMATION
  Report Type: Spontaneous
  Country: US (occurrence: US)
  Receive Date: 20231226
  Receipt Date: 20240326
  Transmission Date: 20240410
  Serious: Yes (Other)
  Sender: FDA-Public Use
  Company Number: US-BEH-2023166763

PATIENT
  Sex: Male

DRUGS (11)
  1. IDELVION [Suspect]
     Active Substance: COAGULATION FACTOR IX RECOMBINANT HUMAN
     Indication: Factor IX deficiency
     Dosage: 10620 INTERNATIONAL UNIT, PRN
     Route: 042
     Dates: start: 20201119
  2. IDELVION [Suspect]
     Active Substance: COAGULATION FACTOR IX RECOMBINANT HUMAN
     Indication: Factor IX deficiency
     Dosage: 10620 INTERNATIONAL UNIT, PRN
     Route: 042
     Dates: start: 20201119
  3. IDELVION [Suspect]
     Active Substance: COAGULATION FACTOR IX RECOMBINANT HUMAN
     Dosage: 10092 INTERNATIONAL UNIT, PRN
     Route: 042
  4. IDELVION [Suspect]
     Active Substance: COAGULATION FACTOR IX RECOMBINANT HUMAN
     Dosage: 10092 INTERNATIONAL UNIT, PRN
     Route: 042
  5. METRONIDAZOLE [Concomitant]
     Active Substance: METRONIDAZOLE
  6. PANTOPRAZOLE [Concomitant]
     Active Substance: PANTOPRAZOLE
  7. CEPHALEXIN [Concomitant]
     Active Substance: CEPHALEXIN
  8. ACETAMINOPHEN\OXYCODONE HYDROCHLORIDE [Concomitant]
     Active Substance: ACETAMINOPHEN\OXYCODONE HYDROCHLORIDE
  9. HYDROCHLOROTHIAZIDE [Concomitant]
     Active Substance: HYDROCHLOROTHIAZIDE
  10. VITAMINS [Concomitant]
     Active Substance: VITAMINS
  11. IMMUNE ENHANCE [Concomitant]

REACTIONS (6)
  - Wound [Recovered/Resolved]
  - Wound secretion [Recovered/Resolved]
  - Cholelithiasis [Unknown]
  - Pain [Unknown]
  - Haemarthrosis [Unknown]
  - Wound [Unknown]
